FAERS Safety Report 9105000 (Version 1)
Quarter: 2013Q1

REPORT INFORMATION
  Report Type: Spontaneous
  Country: AU (occurrence: AU)
  Receive Date: 20130220
  Receipt Date: 20130220
  Transmission Date: 20140127
  Serious: Yes (Death)
  Sender: FDA-Public Use
  Company Number: AU-PFIZER INC-2013062399

PATIENT
  Age: 23 Year
  Sex: Female

DRUGS (3)
  1. VFEND [Suspect]
     Indication: ASPERGILLUS INFECTION
     Dosage: UNK, TWICE DAILY
     Route: 042
  2. ANIDULAFUNGIN [Suspect]
     Indication: ASPERGILLUS INFECTION
  3. AMBISONE [Suspect]
     Indication: ASPERGILLUS INFECTION

REACTIONS (3)
  - Drug level below therapeutic [Fatal]
  - Drug ineffective [Fatal]
  - Liver function test abnormal [Fatal]
